FAERS Safety Report 8680505 (Version 2)
Quarter: 2012Q4

REPORT INFORMATION
  Report Type: 
  Country: US (occurrence: US)
  Receive Date: 20120724
  Receipt Date: 20120903
  Transmission Date: 20130627
  Serious: Yes (Hospitalization)
  Sender: FDA-Public Use
  Company Number: PHEH2012US014277

PATIENT
  Age: 54 Year
  Sex: Female

DRUGS (1)
  1. GILENYA [Suspect]
     Indication: RELAPSING-REMITTING MULTIPLE SCLEROSIS
     Dosage: 0.5 mg, daily
     Route: 048
     Dates: start: 201204, end: 201205

REACTIONS (5)
  - Sepsis [Recovered/Resolved]
  - Bacteraemia [Recovered/Resolved]
  - Pyrexia [Recovered/Resolved]
  - Excoriation [Recovered/Resolved]
  - Inflammation [Recovered/Resolved]
